FAERS Safety Report 21628489 (Version 4)
Quarter: 2023Q4

REPORT INFORMATION
  Report Type: Report from Study
  Country: CN (occurrence: None)
  Receive Date: 20221122
  Receipt Date: 20231013
  Transmission Date: 20240110
  Serious: Yes (Hospitalization)
  Sender: FDA-Public Use
  Company Number: CN-ROCHE-3220693

PATIENT
  Age: 15 Year
  Sex: Female
  Weight: 29 kg

DRUGS (7)
  1. RISDIPLAM [Suspect]
     Active Substance: RISDIPLAM
     Indication: Spinal muscular atrophy
     Dosage: ON 06/NOV/2022, TOOK MOST RECENT DOSE
     Route: 048
     Dates: start: 20180628
  2. OMEPRAZOLE [Concomitant]
     Active Substance: OMEPRAZOLE
     Dosage: DOSE 100ML/20ML
     Route: 042
     Dates: start: 20221107, end: 20221117
  3. CEFOXITIN SODIUM [Concomitant]
     Active Substance: CEFOXITIN SODIUM
     Dosage: DOSE 150ML/1.5G
     Route: 041
     Dates: start: 20221107, end: 20221108
  4. ACETYLCYSTEINE [Concomitant]
     Active Substance: ACETYLCYSTEINE
     Route: 055
     Dates: start: 20221108, end: 20221117
  5. CEFOPERAZONE SODIUM\SULBACTAM SODIUM [Concomitant]
     Active Substance: CEFOPERAZONE SODIUM\SULBACTAM SODIUM
     Dosage: DOSE 100M/1.5G
     Route: 041
     Dates: start: 20221108, end: 20221117
  6. GLUCOSE;POTASSIUM CHLORIDE;SODIUM CHLORIDE [Concomitant]
     Dosage: DOSE 400ML/100ML
     Route: 041
     Dates: start: 20221107, end: 20221115
  7. COMPOUND AMINOBARBITAL [Concomitant]
     Route: 030
     Dates: start: 20221108, end: 20221108

REACTIONS (1)
  - Pneumonia [Recovered/Resolved]

NARRATIVE: CASE EVENT DATE: 20221106
